FAERS Safety Report 7730855-4 (Version None)
Quarter: 2011Q3

REPORT INFORMATION
  Report Type: 
  Country: None (occurrence: None)
  Receive Date: 20110906
  Receipt Date: 20110827
  Transmission Date: 20111222
  Serious: Yes (Death, Life-Threatening, Hospitalization, Other)
  Sender: FDA-Public Use
  Company Number: US-ACTELION-A-US2011-49628

PATIENT

DRUGS (3)
  1. REVATIO [Concomitant]
  2. TRACLEER [Suspect]
     Indication: PULMONARY ARTERIAL HYPERTENSION
     Dosage: UNK
     Route: 048
     Dates: start: 20110321, end: 20110821
  3. COUMADIN [Concomitant]

REACTIONS (6)
  - FLUID OVERLOAD [None]
  - CARDIAC FAILURE [None]
  - DRUG ADMINISTRATION ERROR [None]
  - SWELLING [None]
  - CARDIAC FAILURE CHRONIC [None]
  - CHRONIC OBSTRUCTIVE PULMONARY DISEASE [None]
